FAERS Safety Report 26183262 (Version 1)
Quarter: 2025Q4

REPORT INFORMATION
  Report Type: Spontaneous
  Country: GB (occurrence: GB)
  Receive Date: 20251221
  Receipt Date: 20251221
  Transmission Date: 20260118
  Serious: Yes (Hospitalization)
  Sender: AUROBINDO
  Company Number: GB-TEVA-VS-3400291

PATIENT

DRUGS (1)
  1. PRAVASTATIN [Suspect]
     Active Substance: PRAVASTATIN
     Indication: Product used for unknown indication
     Dosage: UNK
     Route: 061

REACTIONS (3)
  - Tendon rupture [Recovering/Resolving]
  - Tendon pain [Recovering/Resolving]
  - Gait inability [Unknown]

NARRATIVE: CASE EVENT DATE: 20251001
